FAERS Safety Report 12394491 (Version 1)
Quarter: 2016Q2

REPORT INFORMATION
  Report Type: Spontaneous
  Country: FR (occurrence: FR)
  Receive Date: 20160523
  Receipt Date: 20160523
  Transmission Date: 20160815
  Serious: Yes (Other)
  Sender: FDA-Public Use
  Company Number: FR-TEVA-660395ISR

PATIENT
  Age: 27 Year
  Sex: Female

DRUGS (2)
  1. ESTREVA [Suspect]
     Active Substance: ESTRADIOL
     Indication: POLYCYSTIC OVARIES
     Route: 048
     Dates: start: 2003, end: 201604
  2. ANDROCUR [Suspect]
     Active Substance: CYPROTERONE ACETATE
     Indication: POLYCYSTIC OVARIES
     Route: 048
     Dates: start: 2003, end: 201604

REACTIONS (2)
  - Overweight [Unknown]
  - Drug resistance [Unknown]

NARRATIVE: CASE EVENT DATE: 201604
